FAERS Safety Report 23640480 (Version 1)
Quarter: 2024Q1

REPORT INFORMATION
  Report Type: Spontaneous
  Country: ES (occurrence: ES)
  Receive Date: 20240317
  Receipt Date: 20240317
  Transmission Date: 20240409
  Serious: Yes (Death, Life-Threatening, Hospitalization, Other)
  Sender: FDA-Public Use
  Company Number: ES-002147023-NVSC2020ES125476

PATIENT
  Age: 65 Year
  Sex: Female

DRUGS (15)
  1. ACYCLOVIR [Suspect]
     Active Substance: ACYCLOVIR
     Dosage: 800 MILLIGRAM PER 12 HOUR ROUTE OF ADMIN (FREE TEXT): UNKNOWN ROUTE
     Route: 065
  2. ACYCLOVIR [Suspect]
     Active Substance: ACYCLOVIR
     Indication: Infection prophylaxis
     Dosage: 800 MG, BID
     Route: 065
  3. BUSULFAN [Suspect]
     Active Substance: BUSULFAN
     Indication: Bone marrow conditioning regimen
     Dosage: UNK
     Route: 065
  4. CYCLOPHOSPHAMIDE [Suspect]
     Active Substance: CYCLOPHOSPHAMIDE
     Indication: Prophylaxis against graft versus host disease
     Dosage: UNK
     Route: 065
  5. FLUCONAZOLE [Suspect]
     Active Substance: FLUCONAZOLE
     Indication: Infection prophylaxis
     Dosage: 400 MG, QD
     Route: 065
  6. FLUDARABINE PHOSPHATE [Suspect]
     Active Substance: FLUDARABINE PHOSPHATE
     Indication: Bone marrow conditioning regimen
     Dosage: UNK
     Route: 065
  7. GENOXAL [Suspect]
     Active Substance: CYCLOPHOSPHAMIDE
     Indication: Prophylaxis against graft versus host disease
     Dosage: UNK
     Route: 065
  8. LEVOFLOXACIN [Suspect]
     Active Substance: LEVOFLOXACIN
     Indication: Infection prophylaxis
     Dosage: 500 MG, QD
     Route: 065
  9. MYCOPHENOLATE MOFETIL [Suspect]
     Active Substance: MYCOPHENOLATE MOFETIL
     Indication: Immunosuppressant drug therapy
     Dosage: UNK
     Route: 065
  10. MYCOPHENOLATE MOFETIL [Suspect]
     Active Substance: MYCOPHENOLATE MOFETIL
     Indication: Stem cell transplant
  11. TACROLIMUS [Suspect]
     Active Substance: TACROLIMUS
     Indication: Immunosuppressant drug therapy
     Dosage: UNK
     Route: 065
  12. TACROLIMUS [Suspect]
     Active Substance: TACROLIMUS
     Indication: Stem cell transplant
  13. ACYCLOVIR [Concomitant]
     Active Substance: ACYCLOVIR
     Indication: Infection prophylaxis
     Dosage: 800 MG, Q12H
     Route: 065
  14. FLUCONAZOLE [Concomitant]
     Active Substance: FLUCONAZOLE
     Indication: Infection prophylaxis
     Dosage: 400 MG, QD
     Route: 065
  15. LEVOFLOXACIN [Concomitant]
     Active Substance: LEVOFLOXACIN
     Indication: Infection prophylaxis
     Dosage: 500 MG, QD
     Route: 065

REACTIONS (30)
  - Pulmonary embolism [Fatal]
  - Cerebral artery thrombosis [Fatal]
  - Fat necrosis [Fatal]
  - Arteritis infective [Fatal]
  - Splenic vein thrombosis [Fatal]
  - Respiratory disorder [Fatal]
  - Haemodynamic instability [Fatal]
  - Gastrointestinal necrosis [Fatal]
  - Haematoma [Fatal]
  - Hypoxic-ischaemic encephalopathy [Fatal]
  - Thrombosis [Fatal]
  - Cerebral infarction [Fatal]
  - Cardio-respiratory arrest [Fatal]
  - Haemorrhage [Fatal]
  - Ischaemic stroke [Fatal]
  - Thrombocytopenia [Fatal]
  - Gastritis fungal [Fatal]
  - Pulmonary infarction [Fatal]
  - Disseminated mucormycosis [Fatal]
  - Respiratory failure [Fatal]
  - Systemic mycosis [Fatal]
  - Acquired macroglossia [Fatal]
  - Fungal infection [Fatal]
  - Pancreatitis necrotising [Fatal]
  - Epistaxis [Fatal]
  - Septic embolus [Fatal]
  - Pyrexia [Unknown]
  - Neutropenia [Unknown]
  - Mucosal inflammation [Unknown]
  - Product use in unapproved indication [Unknown]
